FAERS Safety Report 5201003-X (Version None)
Quarter: 2007Q1

REPORT INFORMATION
  Report Type: 
  Country: None (occurrence: None)
  Receive Date: 20070108
  Receipt Date: 20061228
  Transmission Date: 20070707
  Serious: Yes (Hospitalization, Other)
  Sender: FDA-Public Use
  Company Number: J200604783

PATIENT
  Age: 36 Year
  Sex: Female

DRUGS (6)
  1. SAWACILLIN [Suspect]
     Indication: WOUND
     Dosage: 750MG PER DAY
     Route: 048
     Dates: start: 20060223, end: 20060301
  2. AMLODIPINE [Concomitant]
     Indication: HYPERTENSION
     Dosage: 5MG PER DAY
     Route: 048
     Dates: start: 20060215
  3. FLOMAX [Concomitant]
     Indication: CYSTITIS
     Dosage: 300MG PER DAY
     Route: 048
     Dates: start: 20060219, end: 20060222
  4. BIOFERMIN-R [Concomitant]
     Dosage: 3G PER DAY
     Route: 048
     Dates: start: 20060219, end: 20060301
  5. LOXONIN [Concomitant]
     Indication: CYSTITIS
     Dosage: 180MG PER DAY
     Route: 048
     Dates: start: 20060219, end: 20060226
  6. METHERGINE [Concomitant]
     Dosage: .375MG PER DAY
     Route: 048
     Dates: start: 20060223, end: 20060301

REACTIONS (3)
  - ABDOMINAL PAIN [None]
  - DIARRHOEA [None]
  - ENTEROCOLITIS HAEMORRHAGIC [None]
